FAERS Safety Report 8846867 (Version 1)
Quarter: 2012Q4

REPORT INFORMATION
  Report Type: Spontaneous
  Country: US (occurrence: None)
  Receive Date: 20121016
  Receipt Date: 20121016
  Transmission Date: 20130627
  Serious: No
  Sender: FDA-Public Use
  Company Number: None

PATIENT
  Sex: Female
  Weight: 49.9 kg

DRUGS (1)
  1. MIRENA IUD [Suspect]
     Indication: CONTRACEPTION

REACTIONS (9)
  - Device dislocation [None]
  - Uterine perforation [None]
  - Maternal exposure before pregnancy [None]
  - Pregnancy [None]
  - Abortion spontaneous [None]
  - Premature delivery [None]
  - Unevaluable event [None]
  - Cervical incompetence [None]
  - Emotional disorder [None]
